FAERS Safety Report 7004803-9 (Version None)
Quarter: 2010Q3

REPORT INFORMATION
  Report Type: 
  Country: None (occurrence: None)
  Receive Date: 20100921
  Receipt Date: 20100614
  Transmission Date: 20110219
  Serious: No
  Sender: FDA-Public Use
  Company Number: A0793280A

PATIENT
  Age: 47 Year
  Sex: Male

DRUGS (5)
  1. EPZICOM [Suspect]
     Indication: HIV INFECTION
     Dosage: 1TAB PER DAY
     Route: 048
     Dates: start: 20090401
  2. FISH OIL [Concomitant]
     Indication: BLOOD CHOLESTEROL INCREASED
  3. TYLENOL [Concomitant]
     Indication: PAIN
  4. ADVIL LIQUI-GELS [Concomitant]
     Indication: PAIN
  5. AMBIEN [Concomitant]

REACTIONS (2)
  - DIARRHOEA [None]
  - FAECES DISCOLOURED [None]
